FAERS Safety Report 7457551-5 (Version None)
Quarter: 2011Q2

REPORT INFORMATION
  Report Type: 
  Country: None (occurrence: None)
  Receive Date: 20110504
  Receipt Date: 20110429
  Transmission Date: 20111010
  Serious: Yes (Hospitalization)
  Sender: FDA-Public Use
  Company Number: HU-AMGEN-HUNNI2010002944

PATIENT
  Age: 23 Month
  Sex: Male
  Weight: 12.2 kg

DRUGS (14)
  1. DARBEPOETIN ALFA [Suspect]
     Indication: RENAL FAILURE CHRONIC
     Dosage: 10 A?G, UNK
     Route: 058
     Dates: start: 20090628
  2. VIGANTOL [Concomitant]
     Dosage: UNK UNK, QD
  3. LEVOTHYROXINE SODIUM [Concomitant]
     Dosage: 25 A?G, QD
  4. SODIUM CHLORIDE [Concomitant]
     Dosage: 2 UNK, UNK
  5. CALCIUM [Concomitant]
     Dosage: 8 ML, QD
  6. ZINNAT [Concomitant]
     Dosage: 2 ML, QD
  7. HYPOTHIAZID [Concomitant]
     Dosage: UNK UNK, BID
  8. NORMODIPINE [Concomitant]
  9. SORBIFER [Concomitant]
  10. FUROSEMID [Concomitant]
     Dosage: 2.5 MG, BID
  11. FOLIC ACID [Concomitant]
     Dosage: UNK UNK, BID
  12. MAGNESIUM [Concomitant]
     Dosage: UNK UNK, QD
  13. OSPAMOX [Concomitant]
     Dosage: 2 ML, QD
  14. POTASSIUM CITRATE [Concomitant]
     Dosage: UNK UNK, QD

REACTIONS (1)
  - GASTROENTERITIS [None]
